FAERS Safety Report 7611391-2 (Version None)
Quarter: 2011Q3

REPORT INFORMATION
  Report Type: 
  Country: None (occurrence: None)
  Receive Date: 20110715
  Receipt Date: 20110704
  Transmission Date: 20111222
  Serious: Yes (Hospitalization)
  Sender: FDA-Public Use
  Company Number: SE-ROCHE-781553

PATIENT
  Sex: Male
  Weight: 79.5 kg

DRUGS (13)
  1. CAPECITABINE [Suspect]
     Dosage: LAST TREATMENT: 03 JUNE 2011.BID FOR 2 WKS BID 5 X PWK, EVERY 3 WKS TRIAL TREATMENT HAS BEEN DELAYED
     Route: 048
     Dates: start: 20110105
  2. CAPECITABINE [Suspect]
     Dosage: CUMULATIVE DOSE :161200MG: LAST TREATMENT WAS ON 04 JUNE 2011.  BID -2 WKS, EVERY 3 WKS.
     Route: 048
     Dates: start: 20110509
  3. EPIRUBICIN [Suspect]
     Dosage: EVERY THREE WEEKS. DATE OF LAST TREATMENT: 26 JANUARY 2011: CUMULATIVE DOSE : 200 MG
     Route: 042
     Dates: start: 20110105
  4. CISPLATIN [Suspect]
     Dosage: LAST TREATMENT : 14 JUNE 2011.  CUMMULATIVE DOSE: 200 MG
     Route: 042
  5. PRIMPERAN TAB [Concomitant]
     Dates: start: 20110329
  6. METOPROLOL TARTRATE [Concomitant]
     Dosage: FREQUENCY 1X1
     Route: 048
     Dates: start: 20110329, end: 20110604
  7. OMEPRAZOLE [Concomitant]
  8. AMLODIPINE [Concomitant]
  9. ENALAPRIL MALEATE [Concomitant]
  10. SIMVASTATIN [Concomitant]
  11. OXALIPLATIN [Suspect]
     Dosage: DATE OF LAST TREATMENT: 26 JANUARY 2011, EVERY 3 WEEK/EVERY 1 WEEK,5 WEEKS.
     Route: 042
     Dates: start: 20110105
  12. CISPLATIN [Suspect]
     Route: 042
     Dates: start: 20110509, end: 20110601
  13. LOPERAMIDE [Concomitant]
     Dosage: FREQUENCY: PRN
     Route: 048
     Dates: start: 20110209

REACTIONS (4)
  - HYPOCALCAEMIA [None]
  - DYSPHAGIA [None]
  - MUCOSAL INFLAMMATION [None]
  - OESOPHAGITIS [None]
